FAERS Safety Report 9928896 (Version 1)
Quarter: 2014Q1

REPORT INFORMATION
  Report Type: Spontaneous
  Country: DE (occurrence: DE)
  Receive Date: 20140227
  Receipt Date: 20140227
  Transmission Date: 20141002
  Serious: Yes (Hospitalization)
  Sender: FDA-Public Use
  Company Number: DE-PFIZER INC-2014052242

PATIENT
  Age: 29 Year
  Sex: Female

DRUGS (4)
  1. SAYANA [Suspect]
  2. LYRICA [Concomitant]
  3. BOTOX [Concomitant]
  4. BACLOFEN [Concomitant]

REACTIONS (2)
  - Blood pressure decreased [Unknown]
  - Circulatory collapse [Unknown]
